FAERS Safety Report 8319787-0 (Version None)
Quarter: 2012Q2

REPORT INFORMATION
  Report Type: 
  Country: None (occurrence: None)
  Receive Date: 20120427
  Receipt Date: 20120419
  Transmission Date: 20120825
  Serious: Yes (Death, Hospitalization, Other)
  Sender: FDA-Public Use
  Company Number: AT-B.I. PHARMACEUTICALS,INC./RIDGEFIELD-2012-EU-02069GD

PATIENT
  Age: 78 Year
  Sex: Male
  Weight: 85 kg

DRUGS (9)
  1. PHENPROCOUMON [Suspect]
     Dosage: 6 MG
  2. DABIGATRAN ETEXILATE [Suspect]
     Indication: THROMBOSIS PROPHYLAXIS
     Dosage: 220 MG
     Route: 048
  3. PHENPROCOUMON [Suspect]
     Dosage: 3 MG
  4. DALTEPARIN SODIUM [Suspect]
     Indication: THROMBOSIS PROPHYLAXIS
     Dosage: 10000 U
  5. ALPROSTADIL [Suspect]
     Dosage: 40 MCG
  6. PHENPROCOUMON [Suspect]
     Indication: THROMBOSIS PROPHYLAXIS
     Dosage: 9 MG
  7. DIGOXIN [Concomitant]
     Dosage: 0.1 MG
  8. ENALAPRIL MALEATE [Concomitant]
     Dosage: 20 MG
  9. HYROCHLOROTHIAZIDE [Concomitant]
     Dosage: 12.5 MG

REACTIONS (6)
  - PAIN IN EXTREMITY [None]
  - HYPOTONIA [None]
  - BASILAR ARTERY OCCLUSION [None]
  - COMA [None]
  - MYOCLONUS [None]
  - DRUG INTERACTION [None]
